FAERS Safety Report 21648831 (Version 1)
Quarter: 2022Q4

REPORT INFORMATION
  Report Type: Spontaneous
  Country: CN (occurrence: CN)
  Receive Date: 20221128
  Receipt Date: 20221128
  Transmission Date: 20230113
  Serious: No
  Sender: FDA-Public Use
  Company Number: CN-ALKEM LABORATORIES LIMITED-CN-ALKEM-2022-09041

PATIENT
  Age: 36 Year
  Sex: Female

DRUGS (7)
  1. TACROLIMUS [Suspect]
     Active Substance: TACROLIMUS
     Indication: Prophylaxis against transplant rejection
     Dosage: UNK
     Route: 048
  2. ENTECAVIR [Suspect]
     Active Substance: ENTECAVIR
     Indication: Antiviral treatment
     Dosage: UNK
     Route: 065
  3. GEMCITABINE [Suspect]
     Active Substance: GEMCITABINE
     Indication: Chemotherapy
     Dosage: 1.2 GRAM
     Route: 065
  4. CISPLATIN [Suspect]
     Active Substance: CISPLATIN
     Indication: Chemotherapy
     Dosage: 30 MILLIGRAM
     Route: 065
  5. ADEMETIONINE [Concomitant]
     Active Substance: ADEMETIONINE
     Indication: Cholestasis
     Dosage: 1000 MILLIGRAM, QD
     Route: 065
  6. VITAMIN K1 [Concomitant]
     Active Substance: PHYTONADIONE
     Indication: Prophylaxis
     Dosage: 30 MILLIGRAM, QD
     Route: 065
  7. CEFOPERAZONE SODIUM\SULBACTAM SODIUM [Concomitant]
     Active Substance: CEFOPERAZONE SODIUM\SULBACTAM SODIUM
     Indication: Anti-infective therapy
     Dosage: 2 GRAM (EVERY 8 HOURS)
     Route: 065

REACTIONS (1)
  - Condition aggravated [Unknown]
